FAERS Safety Report 6668604-3 (Version None)
Quarter: 2010Q2

REPORT INFORMATION
  Report Type: 
  Country: None (occurrence: None)
  Receive Date: 20100406
  Receipt Date: 20100324
  Transmission Date: 20101027
  Serious: Yes (Other)
  Sender: FDA-Public Use
  Company Number: PHHY2010JP03273

PATIENT
  Age: 72 Year
  Sex: Male

DRUGS (3)
  1. ZOMETA [Suspect]
     Indication: METASTASES TO BONE
     Dosage: 4 MG, UNK
     Route: 042
     Dates: start: 20070521, end: 20080303
  2. ZOMETA [Suspect]
     Dosage: 4 MG, UNK
     Dates: start: 20100121
  3. RADIOTHERAPY [Concomitant]
     Indication: PROSTATE CANCER

REACTIONS (7)
  - BONE LESION EXCISION [None]
  - BREATH ODOUR [None]
  - LOOSE TOOTH [None]
  - OSTEONECROSIS [None]
  - PROSTATIC PAIN [None]
  - PURULENCE [None]
  - TOOTH EXTRACTION [None]
